FAERS Safety Report 20776292 (Version 1)
Quarter: 2022Q2

REPORT INFORMATION
  Report Type: Spontaneous
  Country: US (occurrence: None)
  Receive Date: 20220502
  Receipt Date: 20220502
  Transmission Date: 20220721
  Serious: Yes (Life-Threatening, Hospitalization)
  Sender: FDA-Public Use
  Company Number: None

PATIENT
  Age: 70 Year
  Sex: Female
  Weight: 126.1 kg

DRUGS (1)
  1. BRILINTA [Suspect]
     Active Substance: TICAGRELOR
     Indication: Myocardial infarction
     Dosage: FREQUENCY : TWICE A DAY;?
     Route: 048
     Dates: start: 20220412, end: 20220414

REACTIONS (3)
  - Dyspnoea [None]
  - Flushing [None]
  - Myocardial infarction [None]

NARRATIVE: CASE EVENT DATE: 20220414
